FAERS Safety Report 5041829-9 (Version None)
Quarter: 2006Q2

REPORT INFORMATION
  Report Type: 
  Country: None (occurrence: None)
  Receive Date: 20060630
  Receipt Date: 20060622
  Transmission Date: 20061013
  Serious: Yes (Other)
  Sender: FDA-Public Use
  Company Number: HQWYE351723JUN06

PATIENT
  Age: 37 Year
  Sex: Female
  Weight: 60.38 kg

DRUGS (5)
  1. EFFEXOR XR [Suspect]
     Indication: DEPRESSION
     Dosage: SEE IMAGE
     Route: 048
     Dates: start: 20060101, end: 20060101
  2. EFFEXOR XR [Suspect]
     Indication: DEPRESSION
     Dosage: SEE IMAGE
     Route: 048
     Dates: start: 20060301, end: 20060101
  3. EFFEXOR XR [Suspect]
     Indication: DEPRESSION
     Dosage: SEE IMAGE
     Route: 048
     Dates: start: 20051001, end: 20060301
  4. EFFEXOR XR [Suspect]
     Indication: DEPRESSION
     Dosage: SEE IMAGE
     Route: 048
     Dates: start: 20060101, end: 20060501
  5. ATIVAN [Concomitant]

REACTIONS (7)
  - CONSTIPATION [None]
  - DRUG WITHDRAWAL SYNDROME [None]
  - EYE OEDEMA [None]
  - FACE OEDEMA [None]
  - LARYNGEAL OEDEMA [None]
  - OEDEMA MOUTH [None]
  - URTICARIA GENERALISED [None]
